FAERS Safety Report 19623552 (Version 3)
Quarter: 2022Q2

REPORT INFORMATION
  Report Type: Report from Study
  Country: US (occurrence: US)
  Receive Date: 20210728
  Receipt Date: 20220625
  Transmission Date: 20220721
  Serious: Yes (Hospitalization, Other)
  Sender: FDA-Public Use
  Company Number: US-TAKEDA-US201904372

PATIENT
  Age: 40 Year
  Sex: Male
  Weight: 77 kg

DRUGS (16)
  1. TEDUGLUTIDE [Suspect]
     Active Substance: TEDUGLUTIDE
     Indication: Short-bowel syndrome
     Dosage: 3.85 MILLIGRAM, 1/WEEK
     Route: 042
     Dates: start: 201602, end: 201608
  2. TEDUGLUTIDE [Suspect]
     Active Substance: TEDUGLUTIDE
     Indication: Short-bowel syndrome
     Dosage: 3.85 MILLIGRAM, 1/WEEK
     Route: 042
     Dates: start: 201602, end: 201608
  3. TEDUGLUTIDE [Suspect]
     Active Substance: TEDUGLUTIDE
     Indication: Short-bowel syndrome
     Dosage: 3.85 MILLIGRAM, 1/WEEK
     Route: 042
     Dates: start: 201602, end: 201608
  4. TEDUGLUTIDE [Suspect]
     Active Substance: TEDUGLUTIDE
     Indication: Short-bowel syndrome
     Dosage: 3.85 MILLIGRAM, 1/WEEK
     Route: 042
     Dates: start: 201602, end: 201608
  5. TEDUGLUTIDE [Suspect]
     Active Substance: TEDUGLUTIDE
     Dosage: 3.85 MILLIGRAM, QD
     Route: 042
     Dates: start: 201602, end: 201608
  6. TEDUGLUTIDE [Suspect]
     Active Substance: TEDUGLUTIDE
     Dosage: 3.85 MILLIGRAM, QD
     Route: 042
     Dates: start: 201602, end: 201608
  7. TEDUGLUTIDE [Suspect]
     Active Substance: TEDUGLUTIDE
     Dosage: 3.85 MILLIGRAM, QD
     Route: 042
     Dates: start: 201602, end: 201608
  8. TEDUGLUTIDE [Suspect]
     Active Substance: TEDUGLUTIDE
     Dosage: 3.85 MILLIGRAM, QD
     Route: 042
     Dates: start: 201602, end: 201608
  9. DIFLUCAN [Concomitant]
     Active Substance: FLUCONAZOLE
     Indication: Short-bowel syndrome
  10. XANAX [Concomitant]
     Active Substance: ALPRAZOLAM
     Indication: Crohn^s disease
  11. SINGULAIR [Concomitant]
     Active Substance: MONTELUKAST SODIUM
     Indication: Bronchitis chronic
  12. SOLU-MEDROL [Concomitant]
     Active Substance: METHYLPREDNISOLONE SODIUM SUCCINATE
     Indication: Bronchitis chronic
  13. REQUIP [Concomitant]
     Active Substance: ROPINIROLE HYDROCHLORIDE
     Indication: Iron deficiency anaemia
     Dosage: 1 MILLIGRAM, TID
     Route: 048
     Dates: start: 20170720, end: 20180222
  14. REQUIP [Concomitant]
     Active Substance: ROPINIROLE HYDROCHLORIDE
     Dosage: 2 MILLIGRAM, QD
     Route: 048
     Dates: start: 20170504, end: 20180222
  15. DELTASONE [Concomitant]
     Active Substance: PREDNISONE
     Indication: Bronchitis chronic
     Dosage: 5 MILLIGRAM, BID
     Route: 048
     Dates: start: 20170926, end: 20180222
  16. KAY CIEL [Concomitant]
     Active Substance: POTASSIUM CHLORIDE
     Indication: Electrolyte imbalance
     Dosage: 10 MILLILITER, PRN
     Route: 048
     Dates: start: 20170504, end: 20180222

REACTIONS (3)
  - Intestinal fistula [Recovered/Resolved]
  - Short-bowel syndrome [Recovered/Resolved]
  - Crohn^s disease [Recovered/Resolved]

NARRATIVE: CASE EVENT DATE: 20180129
